FAERS Safety Report 5506592-3 (Version None)
Quarter: 2007Q4

REPORT INFORMATION
  Report Type: 
  Country: None (occurrence: None)
  Receive Date: 20071105
  Receipt Date: 20071030
  Transmission Date: 20080405
  Serious: Yes (Other)
  Sender: FDA-Public Use
  Company Number: PHMT2006CA01250

PATIENT
  Age: 50 Year
  Sex: Male

DRUGS (2)
  1. DRUG THERAPY NOS [Concomitant]
  2. ZOMETA [Suspect]
     Indication: METASTASES TO BONE
     Dates: start: 20030101, end: 20060301

REACTIONS (14)
  - ABSCESS [None]
  - BONE LESION [None]
  - BREATH ODOUR [None]
  - DENTAL OPERATION [None]
  - ENTERAL NUTRITION [None]
  - FEEDING DISORDER [None]
  - GINGIVAL DISORDER [None]
  - IMPAIRED HEALING [None]
  - JAW FRACTURE [None]
  - OSTEONECROSIS [None]
  - PAIN IN JAW [None]
  - TOOTH DISORDER [None]
  - TOOTH EXTRACTION [None]
  - TOOTH FRACTURE [None]
